FAERS Safety Report 7960860-4 (Version None)
Quarter: 2011Q4

REPORT INFORMATION
  Report Type: 
  Country: None (occurrence: None)
  Receive Date: 20111207
  Receipt Date: 20111202
  Transmission Date: 20120403
  Serious: Yes (Death)
  Sender: FDA-Public Use
  Company Number: US-AMGEN-USASP2011064486

PATIENT
  Age: 64 Year
  Sex: Male

DRUGS (2)
  1. NPLATE [Suspect]
     Indication: IDIOPATHIC THROMBOCYTOPENIC PURPURA
     Dosage: 1 MUG/KG, UNK
     Dates: start: 20110728, end: 20110729
  2. NPLATE [Suspect]
     Indication: MYELODYSPLASTIC SYNDROME

REACTIONS (1)
  - CARDIAC ARREST [None]
